FAERS Safety Report 8445308-8 (Version None)
Quarter: 2012Q2

REPORT INFORMATION
  Report Type: 
  Country: None (occurrence: None)
  Receive Date: 20120618
  Receipt Date: 20120608
  Transmission Date: 20120825
  Serious: Yes (Hospitalization)
  Sender: FDA-Public Use
  Company Number: FR-JNJFOC-20120607542

PATIENT
  Sex: Female

DRUGS (13)
  1. IRBESARTAN AND HYDROCHLOROTHIAZIDE [Suspect]
     Indication: HYPERTENSION
     Route: 048
     Dates: end: 20111123
  2. COLCHICINE [Suspect]
     Indication: GOUT
     Route: 048
     Dates: start: 20111113, end: 20111117
  3. ACETAMINOPHEN [Concomitant]
     Indication: OSTEOARTHRITIS
     Dosage: AS NEEDED
     Route: 048
  4. TANAKAN [Suspect]
     Indication: PRODUCT USED FOR UNKNOWN INDICATION
     Route: 048
     Dates: end: 20111123
  5. AMYCOR [Concomitant]
     Indication: PRODUCT USED FOR UNKNOWN INDICATION
     Route: 061
     Dates: start: 20111105
  6. LANTUS [Concomitant]
     Indication: PRODUCT USED FOR UNKNOWN INDICATION
     Route: 058
  7. TIMOLOL MALEATE [Concomitant]
     Indication: PRODUCT USED FOR UNKNOWN INDICATION
     Route: 047
  8. IBUPROFEN [Concomitant]
     Indication: PRODUCT USED FOR UNKNOWN INDICATION
     Route: 048
     Dates: end: 20111110
  9. AMLODIPINE [Concomitant]
     Indication: PRODUCT USED FOR UNKNOWN INDICATION
     Route: 048
  10. TRAMADOL HCL [Suspect]
     Indication: OSTEOARTHRITIS
     Dosage: 37.5 MG, 325 MG, ORAL
     Route: 048
     Dates: start: 20111001, end: 20111123
  11. ADENURIC [Suspect]
     Indication: GOUT
     Route: 048
     Dates: start: 20111113, end: 20111117
  12. MICONAZOLE [Concomitant]
     Indication: PRODUCT USED FOR UNKNOWN INDICATION
     Route: 061
     Dates: start: 20110901, end: 20111105
  13. METFORMIN HCL [Concomitant]
     Indication: PRODUCT USED FOR UNKNOWN INDICATION
     Route: 048

REACTIONS (3)
  - SKIN EXFOLIATION [None]
  - RASH PUSTULAR [None]
  - RASH [None]
